FAERS Safety Report 4312253-9 (Version None)
Quarter: 2004Q1

REPORT INFORMATION
  Report Type: 
  Country: None (occurrence: None)
  Receive Date: 20040304
  Receipt Date: 20040304
  Transmission Date: 20041129
  Serious: Yes (Hospitalization)
  Sender: FDA-Public Use
  Company Number: None

PATIENT
  Age: 39 Year
  Sex: Female
  Weight: 73.9363 kg

DRUGS (1)
  1. COLDEEZE QUIGLEY [Suspect]
     Dosage: SPRAY UP EA NOSTRIL 1X
     Route: 045

REACTIONS (12)
  - AGEUSIA [None]
  - ANOSMIA [None]
  - BURNING SENSATION [None]
  - CAUSTIC INJURY [None]
  - CONTUSION [None]
  - DECREASED APPETITE [None]
  - DEPRESSED LEVEL OF CONSCIOUSNESS [None]
  - HYPERSOMNIA [None]
  - OLFACTORY NERVE DISORDER [None]
  - PAIN [None]
  - PHOTOPHOBIA [None]
  - SALIVARY HYPERSECRETION [None]
